FAERS Safety Report 8702502 (Version 3)
Quarter: 2012Q4

REPORT INFORMATION
  Report Type: 
  Country: US (occurrence: US)
  Receive Date: 20120803
  Receipt Date: 20121127
  Transmission Date: 20130627
  Serious: No
  Sender: FDA-Public Use
  Company Number: US-PFIZER INC-2012184734

PATIENT
  Age: 84 Year
  Sex: Female
  Weight: 58.5 kg

DRUGS (7)
  1. LYRICA [Suspect]
     Indication: FIBROMYALGIA
     Dosage: 100 mg, 4x/day
     Route: 048
     Dates: start: 2009
  2. LYRICA [Suspect]
     Indication: ARTHRITIS
  3. LYRICA [Suspect]
     Indication: PAIN
  4. VICODIN [Concomitant]
     Indication: PAIN
     Dosage: 500/5 mg, UNK
  5. INSULIN [Concomitant]
     Indication: DIABETES
     Dosage: UNK
  6. PEPTO-BISMOL [Concomitant]
     Indication: GAS IN STOMACH
     Dosage: UNK
  7. NITROGLYCERIN [Concomitant]
     Dosage: UNK

REACTIONS (7)
  - Fall [Unknown]
  - Malaise [Unknown]
  - Hyperhidrosis [Unknown]
  - Fatigue [Unknown]
  - Sneezing [Unknown]
  - Cough [Unknown]
  - Insomnia [Unknown]
